FAERS Safety Report 14477647 (Version 1)
Quarter: 2018Q1

REPORT INFORMATION
  Report Type: Report from Study
  Country: US (occurrence: US)
  Receive Date: 20180201
  Receipt Date: 20180201
  Transmission Date: 20180509
  Serious: No
  Sender: FDA-Public Use
  Company Number: US-EXELIXIS-CABO-17009473

PATIENT
  Sex: Female

DRUGS (2)
  1. NIVOLUMAB [Concomitant]
     Active Substance: NIVOLUMAB
  2. CABOMETYX [Suspect]
     Active Substance: CABOZANTINIB S-MALATE
     Indication: RENAL CANCER
     Dosage: 60 MG, QD
     Route: 048
     Dates: start: 20161101, end: 20170526

REACTIONS (8)
  - Decreased appetite [Unknown]
  - Headache [Unknown]
  - Hypoaesthesia [Unknown]
  - Nervousness [Unknown]
  - Abdominal pain upper [Unknown]
  - Eyelid margin crusting [Unknown]
  - Memory impairment [Unknown]
  - Stomatitis [Unknown]
